FAERS Safety Report 22195045 (Version 1)
Quarter: 2023Q2

REPORT INFORMATION
  Report Type: Spontaneous
  Country: GB (occurrence: GB)
  Receive Date: 20230411
  Receipt Date: 20230411
  Transmission Date: 20230722
  Serious: Yes (Other)
  Sender: FDA-Public Use
  Company Number: None

PATIENT

DRUGS (11)
  1. ATORVASTATIN [Suspect]
     Active Substance: ATORVASTATIN
     Indication: Ill-defined disorder
     Route: 065
     Dates: start: 20230328
  2. ATORVASTATIN [Concomitant]
     Active Substance: ATORVASTATIN
     Indication: Ill-defined disorder
     Dosage: TAKE ONE AT NIGHT
     Route: 065
     Dates: start: 20230309, end: 20230328
  3. PREGABALIN [Concomitant]
     Active Substance: PREGABALIN
     Indication: Ill-defined disorder
     Dosage: ONE TO BE TAKEN TWICE A DAY
     Route: 065
     Dates: start: 20220824
  4. AMLODIPINE [Concomitant]
     Active Substance: AMLODIPINE BESYLATE
     Indication: Ill-defined disorder
     Dosage: TAKE ONE DAILY
     Route: 065
     Dates: start: 20221104
  5. AMOXICILLIN [Concomitant]
     Active Substance: AMOXICILLIN
     Indication: Ill-defined disorder
     Dosage: TAKE ONE 3 TIMES/DAY
     Route: 065
     Dates: start: 20230313, end: 20230320
  6. BUPRENORPHINE [Concomitant]
     Active Substance: BUPRENORPHINE
     Indication: Ill-defined disorder
     Dosage: APPLY ONE WEEKLY
     Route: 065
     Dates: start: 20220824
  7. DULOXETINE [Concomitant]
     Active Substance: DULOXETINE
     Indication: Ill-defined disorder
     Dosage: 1 TO BE TAKEN EACH NIGHT CAN INCREASE TO2 IF NEEDE
     Route: 065
     Dates: start: 20220825
  8. LANSOPRAZOLE [Concomitant]
     Active Substance: LANSOPRAZOLE
     Indication: Ill-defined disorder
     Dosage: TAKE ONE ONCE DAILY - TRIAL REDUCTION = RVW IN ...
     Route: 065
     Dates: start: 20220824
  9. METFORMIN [Concomitant]
     Active Substance: METFORMIN HYDROCHLORIDE
     Indication: Ill-defined disorder
     Dosage: TAKE TWO TWICE DAILY WITH FOOD
     Route: 065
     Dates: start: 20221115
  10. RAMIPRIL [Concomitant]
     Active Substance: RAMIPRIL
     Indication: Ill-defined disorder
     Dosage: TAKE ONE DAILY
     Route: 065
     Dates: start: 20230116
  11. SERTRALINE [Concomitant]
     Active Substance: SERTRALINE HYDROCHLORIDE
     Indication: Ill-defined disorder
     Dosage: ONE TO BE TAKEN DAILY
     Route: 065
     Dates: start: 20220824

REACTIONS (1)
  - Pain [Unknown]

NARRATIVE: CASE EVENT DATE: 20230328
